FAERS Safety Report 9651081 (Version 1)
Quarter: 2013Q4

REPORT INFORMATION
  Report Type: Spontaneous
  Country: US (occurrence: US)
  Receive Date: 20131029
  Receipt Date: 20131029
  Transmission Date: 20140711
  Serious: No
  Sender: FDA-Public Use
  Company Number: US-PFIZER INC-2013305278

PATIENT
  Sex: 0

DRUGS (1)
  1. EFFEXOR [Suspect]
     Indication: OBSESSIVE-COMPULSIVE DISORDER
     Dosage: 75 MG, THREE TIMES A DAY

REACTIONS (5)
  - Insomnia [Unknown]
  - Off label use [Unknown]
  - Drug ineffective for unapproved indication [Unknown]
  - Anger [Unknown]
  - Therapeutic response unexpected [Unknown]
